FAERS Safety Report 7387744-7 (Version None)
Quarter: 2011Q1

REPORT INFORMATION
  Report Type: 
  Country: None (occurrence: None)
  Receive Date: 20110331
  Receipt Date: 20110325
  Transmission Date: 20110831
  Serious: Yes (Death, Other)
  Sender: FDA-Public Use
  Company Number: IN-GENZYME-FLUD-1000951

PATIENT
  Age: 10 Year
  Sex: Male

DRUGS (7)
  1. CYCLOPHOSPHAMIDE [Suspect]
     Indication: APLASTIC ANAEMIA
  2. EQUINE ATG [Suspect]
     Indication: APLASTIC ANAEMIA
     Dosage: 10 MG/KG, QD
     Route: 065
  3. FLUDARA [Suspect]
     Indication: APLASTIC ANAEMIA
  4. AMPHOTERICIN B [Concomitant]
     Indication: ANTIFUNGAL PROPHYLAXIS
  5. FLUDARA [Suspect]
     Indication: STEM CELL TRANSPLANT
     Dosage: 180 MG/M2, DAYS -7 TO -2
     Route: 065
  6. CYCLOPHOSPHAMIDE [Suspect]
     Indication: STEM CELL TRANSPLANT
     Dosage: 120 MG/KG, DAY -3 TO -2
     Route: 065
  7. EQUINE ATG [Suspect]
     Indication: STEM CELL TRANSPLANT
     Dosage: 10 MG, ONCE OVER 1 HOUR
     Route: 065

REACTIONS (4)
  - BACTERIAL SEPSIS [None]
  - PNEUMONIA [None]
  - SHOCK [None]
  - PULMONARY OEDEMA [None]
